FAERS Safety Report 13332542 (Version 1)
Quarter: 2017Q1

REPORT INFORMATION
  Report Type: Spontaneous
  Country: DE (occurrence: US)
  Receive Date: 20170314
  Receipt Date: 20170314
  Transmission Date: 20170428
  Serious: Yes (Hospitalization)
  Sender: FDA-Public Use
  Company Number: None

PATIENT
  Sex: Female
  Weight: 53 kg

DRUGS (2)
  1. VIEKIRAX (OMBITASVIR, PARITAPREVIR, RITONAVIR) 12.5MG/75MG/50MG [Suspect]
     Active Substance: OMBITASVIR\PARITAPREVIR\RITONAVIR
     Indication: HEPATITIS C
     Dosage: 12.5 MG/75 MG/ 50 MG DAILY P.O.
     Route: 048
     Dates: start: 20170207
  2. EXVIERA 250MG [Suspect]
     Active Substance: DASABUVIR
     Indication: HEPATITIS C
     Route: 048
     Dates: start: 20170207

REACTIONS (2)
  - Acute kidney injury [None]
  - Acute on chronic liver failure [None]

NARRATIVE: CASE EVENT DATE: 20170221
